FAERS Safety Report 9747094 (Version 1)
Quarter: 2013Q4

REPORT INFORMATION
  Report Type: Report from Study
  Country: ZA (occurrence: ZA)
  Receive Date: 20131211
  Receipt Date: 20131211
  Transmission Date: 20140711
  Serious: Yes (Hospitalization)
  Sender: FDA-Public Use
  Company Number: ZA-GILEAD-2013-0089360

PATIENT
  Sex: Female

DRUGS (5)
  1. TENOFOVIR DISOPROXIL FUMARATE [Suspect]
     Indication: HIV INFECTION
     Dosage: UNK
  2. EFAVIRENZ [Suspect]
     Indication: HIV INFECTION
  3. 3TC [Concomitant]
     Indication: HIV INFECTION
     Dosage: UNK
  4. LOPINAVIR W/RITONAVIR [Concomitant]
     Indication: HIV INFECTION
     Dosage: UNK
  5. ZIDOVUDINE [Concomitant]
     Indication: HIV INFECTION

REACTIONS (2)
  - Skin reaction [Recovered/Resolved]
  - Pregnancy [Unknown]
